FAERS Safety Report 5315719-8 (Version None)
Quarter: 2007Q2

REPORT INFORMATION
  Report Type: 
  Country: None (occurrence: None)
  Receive Date: 20070430
  Receipt Date: 20070430
  Transmission Date: 20071010
  Serious: No
  Sender: FDA-Public Use
  Company Number: None

PATIENT
  Sex: Male

DRUGS (2)
  1. ROSUVASTATIN [Suspect]
     Indication: ATRIAL FLUTTER
     Dosage: 20MG DAILY AT BEDTIME PO
     Route: 048
     Dates: start: 20060824, end: 20060827
  2. ROSUVASTATIN [Suspect]
     Indication: CARDIAC FAILURE CONGESTIVE
     Dosage: 20MG DAILY AT BEDTIME PO
     Route: 048
     Dates: start: 20060824, end: 20060827

REACTIONS (3)
  - ALANINE AMINOTRANSFERASE INCREASED [None]
  - ASPARTATE AMINOTRANSFERASE INCREASED [None]
  - LOW DENSITY LIPOPROTEIN INCREASED [None]
